FAERS Safety Report 7407623-6 (Version None)
Quarter: 2011Q2

REPORT INFORMATION
  Report Type: 
  Country: None (occurrence: None)
  Receive Date: 20110405
  Receipt Date: 20110330
  Transmission Date: 20111010
  Serious: Yes (Hospitalization)
  Sender: FDA-Public Use
  Company Number: 2011SP008128

PATIENT
  Sex: Female

DRUGS (3)
  1. CERAZETTE (DESOGESTREL /00754001/) [Suspect]
     Indication: CONTRACEPTION
     Dosage: 75 MCG; ; PO 75 MCG; ; PO 75 MCG; ; PO
     Route: 048
     Dates: start: 20101122, end: 20110219
  2. CERAZETTE (DESOGESTREL /00754001/) [Suspect]
     Indication: CONTRACEPTION
     Dosage: 75 MCG; ; PO 75 MCG; ; PO 75 MCG; ; PO
     Route: 048
     Dates: start: 20080101
  3. CERAZETTE (DESOGESTREL /00754001/) [Suspect]
     Indication: CONTRACEPTION
     Dosage: 75 MCG; ; PO 75 MCG; ; PO 75 MCG; ; PO
     Route: 048
     Dates: start: 20050101

REACTIONS (2)
  - ANAL FISTULA [None]
  - ANAL ABSCESS [None]
